FAERS Safety Report 5868507-8 (Version None)
Quarter: 2008Q3

REPORT INFORMATION
  Report Type: 
  Country: None (occurrence: None)
  Receive Date: 20080828
  Receipt Date: 20080814
  Transmission Date: 20090109
  Serious: Yes (Hospitalization)
  Sender: FDA-Public Use
  Company Number: 236837J08USA

PATIENT
  Age: 57 Year
  Sex: Female

DRUGS (6)
  1. REBIF [Suspect]
     Indication: MULTIPLE SCLEROSIS
     Dosage: 8.8 MCG, 3 IN 1 WEEKS, SUBCUTANEOUS, 22 MCG, 3 IN 1 WEEKS, SUBCUTANEOUS, 44 MCG, 3 IN 1 WEEKS, SUBC
     Route: 058
     Dates: start: 20080701, end: 20080701
  2. REBIF [Suspect]
     Indication: MULTIPLE SCLEROSIS
     Dosage: 8.8 MCG, 3 IN 1 WEEKS, SUBCUTANEOUS, 22 MCG, 3 IN 1 WEEKS, SUBCUTANEOUS, 44 MCG, 3 IN 1 WEEKS, SUBC
     Route: 058
     Dates: start: 20080702, end: 20080701
  3. REBIF [Suspect]
     Indication: MULTIPLE SCLEROSIS
     Dosage: 8.8 MCG, 3 IN 1 WEEKS, SUBCUTANEOUS, 22 MCG, 3 IN 1 WEEKS, SUBCUTANEOUS, 44 MCG, 3 IN 1 WEEKS, SUBC
     Route: 058
     Dates: start: 20080701
  4. NORFLEX [Concomitant]
  5. SEVERAL OTHERS MEDICATION (ALL OTHER THERAPEUTIC PRODUCTS) [Concomitant]
  6. ACETAMINOPHEN [Concomitant]

REACTIONS (5)
  - DRUG DOSE OMISSION [None]
  - NASAL CONGESTION [None]
  - NO THERAPEUTIC RESPONSE [None]
  - PYREXIA [None]
  - TREMOR [None]
